FAERS Safety Report 21750100 (Version 3)
Quarter: 2022Q4

REPORT INFORMATION
  Report Type: Spontaneous
  Country: US (occurrence: US)
  Receive Date: 20221219
  Receipt Date: 20221219
  Transmission Date: 20230113
  Serious: No
  Sender: FDA-Public Use
  Company Number: US-GBT-015183

PATIENT
  Age: 11 Year
  Sex: Female

DRUGS (1)
  1. OXBRYTA [Suspect]
     Active Substance: VOXELOTOR
     Indication: Sickle cell disease
     Dosage: OXBRYTA 300MG TABLET FOR?ORAL SUSPENSION , DISSOLVE 3 TABLETS IN 15ML OF CLEAR ROOM TEMPERATURE L...
     Route: 048
     Dates: start: 20220728

REACTIONS (9)
  - Dyspnoea [Unknown]
  - Product dose omission issue [Unknown]
  - Pyrexia [Unknown]
  - Rash [Unknown]
  - Headache [Unknown]
  - Product colour issue [Unknown]
  - Anxiety [Unknown]
  - Retching [Unknown]
  - Product use complaint [Unknown]

NARRATIVE: CASE EVENT DATE: 20220801
